FAERS Safety Report 8138468-X (Version None)
Quarter: 2012Q1

REPORT INFORMATION
  Report Type: 
  Country: None (occurrence: None)
  Receive Date: 20120215
  Receipt Date: 20120210
  Transmission Date: 20120608
  Serious: Yes (Other)
  Sender: FDA-Public Use
  Company Number: DE-JNJFOC-20120207204

PATIENT
  Age: 52 Year
  Sex: Female

DRUGS (1)
  1. NICOTINE [Suspect]
     Indication: SMOKING CESSATION THERAPY
     Dosage: 8 TO 10 PIECES PER DAY, ABOUT TWO YEARS AGO
     Route: 048
     Dates: start: 20100101

REACTIONS (2)
  - INTENTIONAL DRUG MISUSE [None]
  - DEPENDENCE [None]
